FAERS Safety Report 25158762 (Version 1)
Quarter: 2025Q2

REPORT INFORMATION
  Report Type: Report from Study
  Country: US (occurrence: US)
  Receive Date: 20250404
  Receipt Date: 20250404
  Transmission Date: 20250716
  Serious: No
  Sender: SUNOVION
  Company Number: US-SUMITOMO PHARMA SWITZERLAND GMBH-2025SPA002916

PATIENT

DRUGS (14)
  1. ORGOVYX [Suspect]
     Active Substance: RELUGOLIX
     Indication: Prostate cancer
     Dosage: 360 MG, SINGLE
     Route: 048
  2. ORGOVYX [Suspect]
     Active Substance: RELUGOLIX
     Dosage: 120 MG, QD
     Route: 048
     Dates: start: 202407
  3. AMLODIPINE [Concomitant]
     Active Substance: AMLODIPINE BESYLATE
     Route: 065
  4. ARMODAFINIL [Concomitant]
     Active Substance: ARMODAFINIL
     Route: 065
  5. ASPIRIN [Concomitant]
     Active Substance: ASPIRIN
  6. BRILINTA [Concomitant]
     Active Substance: TICAGRELOR
     Route: 065
  7. EZETIMIBE [Concomitant]
     Active Substance: EZETIMIBE
     Route: 065
  8. METOPROLOL [Concomitant]
     Active Substance: METOPROLOL
     Route: 065
  9. MONTELUKAST [Concomitant]
     Active Substance: MONTELUKAST
     Route: 065
  10. VITAMINS [Concomitant]
     Active Substance: VITAMINS
     Route: 065
  11. NUBEQA [Concomitant]
     Active Substance: DAROLUTAMIDE
     Route: 065
  12. PEPCID [Concomitant]
     Active Substance: FAMOTIDINE
     Route: 065
  13. PRALUENT [Concomitant]
     Active Substance: ALIROCUMAB
     Route: 065
  14. TAMSULOSIN [Concomitant]
     Active Substance: TAMSULOSIN
     Route: 065

REACTIONS (3)
  - Weight fluctuation [Unknown]
  - Glycosylated haemoglobin abnormal [Unknown]
  - Hot flush [Unknown]
